FAERS Safety Report 16296739 (Version 1)
Quarter: 2019Q2

REPORT INFORMATION
  Report Type: Spontaneous
  Country: HR (occurrence: HR)
  Receive Date: 20190510
  Receipt Date: 20190510
  Transmission Date: 20190711
  Serious: Yes (Hospitalization)
  Sender: FDA-Public Use
  Company Number: HR-PFIZER INC-2019196126

PATIENT
  Age: 69 Year
  Sex: Female
  Weight: 105 kg

DRUGS (3)
  1. VALSACOMBI [Suspect]
     Active Substance: HYDROCHLOROTHIAZIDE\VALSARTAN
     Indication: ESSENTIAL HYPERTENSION
     Dosage: 1 DF, QD (320/12,5; 1X1) 1 DF= 320 MG VALSARTAN + 12,5 MG HYDROCHLOROTHIAZIDE
     Route: 048
  2. CORDARONE [Suspect]
     Active Substance: AMIODARONE HYDROCHLORIDE
     Indication: ATRIAL FIBRILLATION
     Dosage: 200 MG, QD
     Route: 048
     Dates: start: 2019, end: 2019
  3. ELIQUIS [Suspect]
     Active Substance: APIXABAN
     Indication: ATRIAL FIBRILLATION
     Dosage: 10 MG, QD (5MG; 2X1) ADR ADEQUATELY LABELLED: ORAL MUCOSA HEMATOMA, PETECHIAE.XADR NOT ADEQUATELY LA
     Route: 048
     Dates: start: 20171229, end: 20190301

REACTIONS (3)
  - Cyanosis [Recovered/Resolved]
  - Oral mucosa haematoma [Recovering/Resolving]
  - Petechiae [Recovered/Resolved]

NARRATIVE: CASE EVENT DATE: 20171230
